FAERS Safety Report 13303227 (Version 5)
Quarter: 2017Q2

REPORT INFORMATION
  Report Type: Other
  Country: DE (occurrence: DE)
  Receive Date: 20170307
  Receipt Date: 20170412
  Transmission Date: 20170830
  Serious: Yes (Hospitalization, Other)
  Sender: FDA-Public Use
  Company Number: DE-SHIRE-DE201704471

PATIENT
  Age: 61 Year
  Sex: Female
  Weight: 53 kg

DRUGS (2)
  1. REVESTIVE [Suspect]
     Active Substance: TEDUGLUTIDE
     Indication: SHORT-BOWEL SYNDROME
     Dosage: 0.26 ML, 1X/DAY:QD
     Route: 058
     Dates: start: 20160831, end: 20170224
  2. REVESTIVE [Suspect]
     Active Substance: TEDUGLUTIDE
     Dosage: 0.13 ML, UNK
     Route: 058
     Dates: start: 20170314

REACTIONS (9)
  - Pneumonia [Unknown]
  - Sepsis [Unknown]
  - Hydronephrosis [Unknown]
  - Adverse event [Not Recovered/Not Resolved]
  - Non-cardiac chest pain [Unknown]
  - Endocarditis [Unknown]
  - Urinary tract infection [Unknown]
  - Urinary retention [Not Recovered/Not Resolved]
  - Pyrexia [Recovered/Resolved]

NARRATIVE: CASE EVENT DATE: 20170220
